FAERS Safety Report 18490303 (Version 1)
Quarter: 2020Q4

REPORT INFORMATION
  Report Type: Report from Study
  Country: US (occurrence: US)
  Receive Date: 20201111
  Receipt Date: 20201111
  Transmission Date: 20210114
  Serious: Yes (Hospitalization)
  Sender: FDA-Public Use
  Company Number: US-JNJFOC-20201110914

PATIENT
  Age: 24 Year
  Sex: Male
  Weight: 90.8 kg

DRUGS (6)
  1. INFLIXIMAB, RECOMBINANT [Suspect]
     Active Substance: INFLIXIMAB
     Indication: CROHN^S DISEASE
     Route: 042
     Dates: start: 20100512
  2. INFLIXIMAB, RECOMBINANT [Suspect]
     Active Substance: INFLIXIMAB
     Route: 042
     Dates: start: 20170316
  3. INFLIXIMAB, RECOMBINANT [Suspect]
     Active Substance: INFLIXIMAB
     Route: 042
     Dates: start: 201912
  4. HUMIRA [Concomitant]
     Active Substance: ADALIMUMAB
     Route: 065
  5. STELARA [Concomitant]
     Active Substance: USTEKINUMAB
  6. ENTYVIO [Concomitant]
     Active Substance: VEDOLIZUMAB
     Route: 065

REACTIONS (1)
  - Crohn^s disease [Not Recovered/Not Resolved]

NARRATIVE: CASE EVENT DATE: 202009
